FAERS Safety Report 6584982-8 (Version None)
Quarter: 2010Q1

REPORT INFORMATION
  Report Type: 
  Country: None (occurrence: None)
  Receive Date: 20100217
  Receipt Date: 20100205
  Transmission Date: 20100710
  Serious: Yes (Other)
  Sender: FDA-Public Use
  Company Number: JP-ELI_LILLY_AND_COMPANY-JP201002002130

PATIENT
  Age: 55 Year
  Sex: Female

DRUGS (3)
  1. ZYPREXA [Suspect]
     Indication: PSYCHOTIC DISORDER
     Dosage: 5 MG, DAILY (1/D)
     Route: 048
     Dates: start: 20050101, end: 20100205
  2. LIMAS [Concomitant]
     Indication: MANIA
     Dosage: 200 MG, DAILY (1/D)
     Route: 048
     Dates: end: 20100205
  3. LENDORMIN [Concomitant]
     Route: 048
     Dates: end: 20100205

REACTIONS (1)
  - ATRIOVENTRICULAR BLOCK COMPLETE [None]
